FAERS Safety Report 6126287-5 (Version None)
Quarter: 2009Q1

REPORT INFORMATION
  Report Type: 
  Country: None (occurrence: None)
  Receive Date: 20090320
  Receipt Date: 20090309
  Transmission Date: 20090719
  Serious: Yes (Death, Hospitalization)
  Sender: FDA-Public Use
  Company Number: US-ROCHE-621339

PATIENT
  Sex: Female

DRUGS (5)
  1. TICLOPIDINE HCL [Suspect]
     Indication: ANTIPLATELET THERAPY
     Dosage: INITIAL DOSE IMMEDIATELY BEFORE STENT IMPLANTATION PROCEDURE
     Route: 065
  2. TICLOPIDINE HCL [Suspect]
     Dosage: ADMINISTERED ON THE EVENING OF STENT IMPLANTATION
     Route: 065
  3. HEPARIN SODIUM [Suspect]
     Indication: DRUG USE FOR UNKNOWN INDICATION
     Dosage: WEIGHT ADJUSTED DOSE: 100 U/KG; GIVEN DURING STENT IMPLANTATION PROCEDURE
     Route: 065
  4. HEPARIN SODIUM [Suspect]
     Dosage: ADDITIONAL DOSE TO MAINTAIN ACTIVATED CLOTTING TIME
     Route: 065
  5. ASPIRIN [Suspect]
     Indication: ANTIPLATELET THERAPY
     Dosage: MORE THAN OR EQUAL TO 325 MG BEFORE/DURING STENT IMPLANTATION PROCEDURE
     Route: 065

REACTIONS (3)
  - DEATH [None]
  - MYOCARDIAL ISCHAEMIA [None]
  - THROMBOSIS IN DEVICE [None]
